FAERS Safety Report 26015047 (Version 1)
Quarter: 2025Q4

REPORT INFORMATION
  Report Type: Spontaneous
  Country: US (occurrence: US)
  Receive Date: 20251109
  Receipt Date: 20251109
  Transmission Date: 20260118
  Serious: No
  Sender: SANOFI AVENTIS
  Company Number: US-SA-2025SA321782

PATIENT
  Age: 47 Year
  Sex: Female

DRUGS (4)
  1. DUPIXENT [Suspect]
     Active Substance: DUPILUMAB
     Indication: Dermatitis atopic
     Dosage: UNK
     Dates: start: 20230730, end: 20240830
  2. EUCRISA [Concomitant]
     Active Substance: CRISABOROLE
  3. MOMETASONE [Concomitant]
     Active Substance: MOMETASONE
     Route: 061
  4. KENALOG [Concomitant]
     Active Substance: TRIAMCINOLONE ACETONIDE
     Dosage: 40 MG
     Route: 030

REACTIONS (2)
  - Pruritus [Unknown]
  - Treatment failure [Unknown]
